FAERS Safety Report 9676056 (Version 3)
Quarter: 2014Q1

REPORT INFORMATION
  Report Type: Spontaneous
  Country: US (occurrence: US)
  Receive Date: 20131107
  Receipt Date: 20140109
  Transmission Date: 20141002
  Serious: Yes (Hospitalization)
  Sender: FDA-Public Use
  Company Number: PHEH2013US023260

PATIENT
  Age: 86 Year
  Sex: Female

DRUGS (1)
  1. FORADIL [Suspect]
     Indication: CHRONIC OBSTRUCTIVE PULMONARY DISEASE
     Dosage: UNK UKN, BID FOR MANY YEARS
     Route: 055

REACTIONS (4)
  - Compression fracture [Unknown]
  - Pain [Unknown]
  - Incorrect dose administered [Unknown]
  - Device malfunction [Unknown]
